FAERS Safety Report 6207091-6 (Version None)
Quarter: 2009Q2

REPORT INFORMATION
  Report Type: 
  Country: None (occurrence: None)
  Receive Date: 20090522
  Receipt Date: 20080814
  Transmission Date: 20091009
  Serious: Yes (Other)
  Sender: FDA-Public Use
  Company Number: 1000000325

PATIENT
  Sex: Female

DRUGS (2)
  1. DINOPROSTONE (DINOPROSTONE) (10 MILLIGRAM, VAGINAL INSERT) [Suspect]
     Indication: LABOUR INDUCTION
     Dosage: (10 MG, ONCE) , VAGINAL
     Route: 067
     Dates: start: 20080726, end: 20080726
  2. PITOCIN [Concomitant]

REACTIONS (1)
  - DRUG INEFFECTIVE [None]
